FAERS Safety Report 7955140-7 (Version None)
Quarter: 2011Q4

REPORT INFORMATION
  Report Type: 
  Country: None (occurrence: None)
  Receive Date: 20111202
  Receipt Date: 20111121
  Transmission Date: 20120403
  Serious: Yes (Hospitalization, Other)
  Sender: FDA-Public Use
  Company Number: DE-JNJFOC-049-0073-990003

PATIENT
  Sex: Male
  Weight: 13 kg

DRUGS (35)
  1. NOREPINEPHRINE BITARTRATE [Suspect]
     Indication: PRODUCT USED FOR UNKNOWN INDICATION
     Dosage: DAILY DOSE TEXT: UNK
     Route: 065
     Dates: start: 19961210
  2. EPINEPHRINE HYDROCHLORIDE [Suspect]
     Indication: PRODUCT USED FOR UNKNOWN INDICATION
     Dosage: DAILY DOSE TEXT: UNK
     Route: 065
     Dates: start: 19961206
  3. SULFADIAZINE [Suspect]
     Indication: PRODUCT USED FOR UNKNOWN INDICATION
     Dosage: DAILY DOSE TEXT: UNK
     Route: 065
     Dates: start: 19961116, end: 19961127
  4. ALDACTONE [Suspect]
     Indication: UNEVALUABLE EVENT
     Dosage: DAILY DOSE TEXT: UNK
     Route: 065
     Dates: start: 19961204
  5. CEFTAZIDIME SODIUM [Suspect]
     Indication: PRODUCT USED FOR UNKNOWN INDICATION
     Dosage: DAILY DOSE TEXT: UNK
     Route: 065
     Dates: start: 19961122, end: 19961130
  6. MORPHINE HYDROCHLORIDE [Suspect]
     Indication: PRODUCT USED FOR UNKNOWN INDICATION
     Dosage: DAILY DOSE TEXT: UNK
     Route: 065
     Dates: start: 19961130
  7. MUCOSOLVAN [Suspect]
     Indication: PRODUCT USED FOR UNKNOWN INDICATION
     Dosage: DAILY DOSE TEXT: UNK
     Route: 065
     Dates: start: 19961211
  8. NOVALGIN [Suspect]
     Indication: PRODUCT USED FOR UNKNOWN INDICATION
     Dosage: DAILY DOSE TEXT: UNK
     Route: 065
     Dates: start: 19961120, end: 19961126
  9. PANCURONIUM BROMIDE [Suspect]
     Indication: UNEVALUABLE EVENT
     Dosage: DAILY DOSE TEXT: UNK
     Route: 065
     Dates: start: 19961213, end: 19961213
  10. NEUPOGEN [Suspect]
     Indication: BONE MARROW TRANSPLANT
     Dosage: DAILY DOSE TEXT: UNK
     Route: 042
     Dates: start: 19961125
  11. CLINDAMYCIN PALMITATE HYDROCHLORIDE [Suspect]
     Indication: PRODUCT USED FOR UNKNOWN INDICATION
     Dosage: DAILY DOSE TEXT: UNK
     Route: 065
     Dates: start: 19961203
  12. ZOVIRAX [Suspect]
     Indication: PRODUCT USED FOR UNKNOWN INDICATION
     Dosage: DAILY DOSE TEXT: UNK
     Route: 065
     Dates: start: 19961127
  13. MIDAZOLAM HCL [Suspect]
     Indication: PRODUCT USED FOR UNKNOWN INDICATION
     Dosage: DAILY DOSE TEXT: UNK
     Route: 065
     Dates: start: 19961209
  14. ETOPOSIDE [Suspect]
     Indication: PRODUCT USED FOR UNKNOWN INDICATION
     Dosage: DAILY DOSE TEXT: UNK
     Route: 065
     Dates: start: 19961122, end: 19961122
  15. PHENOBARBITAL TAB [Suspect]
     Indication: UNEVALUABLE EVENT
     Dosage: DAILY DOSE TEXT: UNK
     Route: 065
     Dates: start: 19961209
  16. METHYLPREDNISOLONE [Suspect]
     Indication: UNEVALUABLE EVENT
     Dosage: DAILY DOSE TEXT: UNK
     Route: 065
     Dates: start: 19961124
  17. ZIENAM [Suspect]
     Indication: PRODUCT USED FOR UNKNOWN INDICATION
     Dosage: DAILY DOSE TEXT: UNK
     Route: 065
     Dates: start: 19961201
  18. AMBISOME [Suspect]
     Indication: PRODUCT USED FOR UNKNOWN INDICATION
     Dosage: FREQUENCY TEXT: DAILY DAILY DOSE QTY: 40 MG
     Route: 065
     Dates: start: 19961124
  19. DOPAMINE HYDROCHLORIDE [Suspect]
     Indication: PRODUCT USED FOR UNKNOWN INDICATION
     Dosage: DAILY DOSE TEXT: UNK
     Route: 065
     Dates: start: 19961210
  20. IMMUNE GLOBULIN INTRAVENOUS (HUMAN) [Suspect]
     Indication: PRODUCT USED FOR UNKNOWN INDICATION
     Dosage: DAILY DOSE TEXT: UNK
     Route: 065
     Dates: start: 19961127, end: 19961210
  21. PHENYTOIN SODIUM [Suspect]
     Indication: UNEVALUABLE EVENT
     Dosage: DAILY DOSE TEXT: UNK
     Route: 065
     Dates: start: 19961114, end: 19961124
  22. TOBRAMYCIN [Suspect]
     Indication: PRODUCT USED FOR UNKNOWN INDICATION
     Dosage: DAILY DOSE TEXT: UNK
     Route: 065
     Dates: start: 19961124
  23. ACETAMINOPHEN [Suspect]
     Indication: PRODUCT USED FOR UNKNOWN INDICATION
     Dosage: DAILY DOSE TEXT: UNK
     Route: 065
     Dates: start: 19961120, end: 19961126
  24. DIFLUCAN [Suspect]
     Indication: PRODUCT USED FOR UNKNOWN INDICATION
     Dosage: DAILY DOSE TEXT: UNK
     Route: 065
     Dates: start: 19961117, end: 19961125
  25. ACETYLCYSTEINE [Suspect]
     Indication: PRODUCT USED FOR UNKNOWN INDICATION
     Dosage: DAILY DOSE TEXT: UNK
     Route: 065
     Dates: start: 19961130
  26. ZANTAC [Suspect]
     Indication: PRODUCT USED FOR UNKNOWN INDICATION
     Dosage: DAILY DOSE TEXT: UNK
     Route: 065
     Dates: end: 19961211
  27. BACTRIM [Suspect]
     Indication: PRODUCT USED FOR UNKNOWN INDICATION
     Dosage: DAILY DOSE TEXT: UNK
     Route: 065
     Dates: start: 19961129
  28. FENTANYL [Suspect]
     Indication: PRODUCT USED FOR UNKNOWN INDICATION
     Dosage: DAILY DOSE TEXT: UNK
     Route: 065
     Dates: start: 19961209
  29. HYDROMEDIN [Suspect]
     Indication: PRODUCT USED FOR UNKNOWN INDICATION
     Dosage: DAILY DOSE TEXT: UNK
     Route: 065
     Dates: start: 19961212
  30. ALPROSTADIL [Suspect]
     Indication: PRODUCT USED FOR UNKNOWN INDICATION
     Dosage: DAILY DOSE TEXT: UNK
     Route: 065
     Dates: start: 19961201
  31. MULTIVITAMIN ADDITIVE [Suspect]
     Indication: PRODUCT USED FOR UNKNOWN INDICATION
     Dosage: DAILY DOSE TEXT: UNK
     Route: 065
     Dates: start: 19961126
  32. ACETAMINOPHEN [Suspect]
     Route: 065
  33. LASIX [Suspect]
     Indication: PRODUCT USED FOR UNKNOWN INDICATION
     Dosage: DAILY DOSE TEXT: UNK
     Route: 065
     Dates: start: 19961124
  34. METHOTREXATE [Suspect]
     Indication: PRODUCT USED FOR UNKNOWN INDICATION
     Dosage: DAILY DOSE TEXT: UNK
     Route: 065
     Dates: start: 19961127, end: 19961129
  35. MULTIVITAMIN ADDITIVE [Suspect]
     Indication: PRODUCT USED FOR UNKNOWN INDICATION
     Dosage: DAILY DOSE TEXT: UNK
     Route: 065
     Dates: start: 19961127

REACTIONS (4)
  - ASCITES [None]
  - STEVENS-JOHNSON SYNDROME [None]
  - ANGIOEDEMA [None]
  - OBSTRUCTIVE AIRWAYS DISORDER [None]
